FAERS Safety Report 19219573 (Version 1)
Quarter: 2021Q2

REPORT INFORMATION
  Report Type: Spontaneous
  Country: US (occurrence: US)
  Receive Date: 20210506
  Receipt Date: 20210506
  Transmission Date: 20210717
  Serious: Yes (Life-Threatening, Hospitalization, Other)
  Sender: FDA-Public Use
  Company Number: US-LUPIN PHARMACEUTICALS INC.-2021-06132

PATIENT
  Age: 23 Year
  Sex: Female

DRUGS (1)
  1. BUPROPION HYDROCHLORIDE EXTENDED?RELEASE TABLETS [Suspect]
     Active Substance: BUPROPION HYDROCHLORIDE
     Indication: PRODUCT USED FOR UNKNOWN INDICATION
     Dosage: AT LEAST 100 DOSAGE FORM
     Route: 048

REACTIONS (10)
  - Hallucination [Unknown]
  - Left ventricular dilatation [Recovering/Resolving]
  - Intentional overdose [Unknown]
  - Bundle branch block left [Recovering/Resolving]
  - Cardiomyopathy [Recovering/Resolving]
  - Hypokinesia [Recovering/Resolving]
  - Tachycardia [Recovering/Resolving]
  - Cardiogenic shock [Recovering/Resolving]
  - Status epilepticus [Unknown]
  - Electrocardiogram QRS complex prolonged [Recovering/Resolving]
